FAERS Safety Report 6727726-9 (Version None)
Quarter: 2010Q2

REPORT INFORMATION
  Report Type: 
  Country: None (occurrence: None)
  Receive Date: 20100517
  Receipt Date: 20100504
  Transmission Date: 20101027
  Serious: Yes (Death)
  Sender: FDA-Public Use
  Company Number: US-ROCHE-694983

PATIENT
  Sex: Male

DRUGS (16)
  1. MYCOPHENOLATE MOFETIL [Suspect]
     Dosage: BY MOUTH
     Route: 050
     Dates: start: 20040601
  2. PROGRAF [Concomitant]
     Dosage: BY MOUTH
     Route: 050
     Dates: start: 20020928
  3. PREDNISONE [Concomitant]
     Dosage: BY MOUTH
     Route: 050
     Dates: start: 20020928
  4. FUROSEMIDE [Concomitant]
     Dosage: DOSE; 80 MG; TAKES ONE AND HALF TABLET BY MOUTH
     Route: 050
     Dates: start: 20020928
  5. ALLOPURINOL [Concomitant]
     Dosage: BY MOUTH
     Route: 050
     Dates: start: 20061107
  6. LIPITOR [Concomitant]
     Dosage: BY MOUTH
     Route: 050
     Dates: start: 20061123
  7. DIGITEK [Concomitant]
     Dosage: BY MOUTH
     Route: 050
     Dates: start: 20061226
  8. COTRIM [Concomitant]
     Dosage: ONE TABLET EACH OF 400-80M; BY MOUTH
     Route: 050
     Dates: start: 20061107
  9. TRAMADOL HCL [Concomitant]
     Dosage: 1 OR 2 TABLETS BY MOUTH EVERY 6 HOURS AS NEEDED
     Route: 050
     Dates: start: 20070108
  10. LISINOPRIL [Concomitant]
     Dosage: BY MOUTH
     Route: 050
     Dates: start: 20070323
  11. COUMADIN [Concomitant]
     Dosage: BY MOUTH
     Route: 050
     Dates: start: 20070323
  12. OXYCOD [Concomitant]
     Dosage: STRENGTH;5/325 MG;AS NEEDED
     Route: 050
     Dates: start: 20070408
  13. COLCHICINE [Concomitant]
     Indication: GOUT
     Route: 065
     Dates: start: 20070730
  14. KETOCONAZOLE [Concomitant]
     Dosage: HALF TABLETBY MOUTH
     Route: 050
     Dates: start: 20070124
  15. LISPRO INSULIN [Concomitant]
     Dates: start: 20070203
  16. LANTUS [Concomitant]
     Dates: start: 20070203

REACTIONS (1)
  - PULMONARY EMBOLISM [None]
